FAERS Safety Report 5579491-9 (Version None)
Quarter: 2008Q1

REPORT INFORMATION
  Report Type: 
  Country: None (occurrence: None)
  Receive Date: 20080102
  Receipt Date: 20071231
  Transmission Date: 20080703
  Serious: Yes (Death)
  Sender: FDA-Public Use
  Company Number: US-GENENTECH-253261

PATIENT
  Age: 82 Year
  Sex: Female

DRUGS (2)
  1. RITUXAN [Suspect]
     Indication: B-CELL LYMPHOMA
  2. TEMAZEPAM [Concomitant]
     Indication: INSOMNIA
     Dosage: 15 MG, UNK

REACTIONS (4)
  - ABNORMAL BEHAVIOUR [None]
  - FALL [None]
  - INSOMNIA [None]
  - SKULL FRACTURE [None]
